APPROVED DRUG PRODUCT: IODOTOPE
Active Ingredient: SODIUM IODIDE I-131
Strength: 1-130mCi
Dosage Form/Route: CAPSULE;ORAL
Application: N010929 | Product #001
Applicant: BRACCO DIAGNOSTICS INC
Approved: Approved Prior to Jan 1, 1982 | RLD: No | RS: No | Type: DISCN